FAERS Safety Report 21951007 (Version 2)
Quarter: 2023Q1

REPORT INFORMATION
  Report Type: Spontaneous
  Country: US (occurrence: US)
  Receive Date: 20230203
  Receipt Date: 20230317
  Transmission Date: 20230418
  Serious: Yes (Other)
  Sender: FDA-Public Use
  Company Number: US-PFIZER INC-PV202300016502

PATIENT
  Age: 69 Year
  Sex: Female

DRUGS (2)
  1. CIBINQO [Suspect]
     Active Substance: ABROCITINIB
     Indication: Dermatitis atopic
     Dosage: UNK
     Dates: start: 20230125
  2. CIBINQO [Suspect]
     Active Substance: ABROCITINIB
     Indication: Skin disorder

REACTIONS (1)
  - Dementia [Unknown]
